FAERS Safety Report 10026714 (Version 1)
Quarter: 2014Q1

REPORT INFORMATION
  Report Type: Spontaneous
  Country: IN (occurrence: IN)
  Receive Date: 20140321
  Receipt Date: 20140321
  Transmission Date: 20141002
  Serious: Yes (Hospitalization)
  Sender: FDA-Public Use
  Company Number: IN-BRISTOL-MYERS SQUIBB COMPANY-20476370

PATIENT
  Age: 61 Year
  Sex: Female

DRUGS (9)
  1. ELIQUIS [Suspect]
     Route: 048
     Dates: start: 20140307
  2. PARACETAMOL [Concomitant]
  3. OMEPRAZOLE [Concomitant]
  4. PREGABALIN [Concomitant]
  5. TRAMADOL [Concomitant]
  6. NAPROXEN [Concomitant]
  7. ELTROXIN [Concomitant]
  8. CHLOROQUINE [Concomitant]
  9. GLUCOSE [Concomitant]

REACTIONS (3)
  - Catheter site discharge [Unknown]
  - Post procedural discharge [Unknown]
  - Haemorrhage [Unknown]
